FAERS Safety Report 7406797-0 (Version None)
Quarter: 2011Q2

REPORT INFORMATION
  Report Type: 
  Country: None (occurrence: None)
  Receive Date: 20110411
  Receipt Date: 20110405
  Transmission Date: 20111010
  Serious: Yes (Hospitalization)
  Sender: FDA-Public Use
  Company Number: US-GILEAD-2010-0034705

PATIENT
  Sex: Male

DRUGS (21)
  1. LISINOPRIL [Concomitant]
  2. LOPERAMIDE [Concomitant]
  3. PAROXETINE HCL [Concomitant]
  4. MICARDIS [Concomitant]
  5. CYANOCOBALAMIN [Concomitant]
  6. REVATIO [Concomitant]
  7. ALBUTEROL SULFATE [Concomitant]
  8. TRIAMCINOLONE ACETONIDE [Concomitant]
  9. AZITHROMYCIN [Concomitant]
  10. TELMISARTAN [Concomitant]
  11. FENOFIBRATE [Concomitant]
  12. OXYGEN [Concomitant]
  13. GABAPENTIN [Concomitant]
  14. LETAIRIS [Suspect]
     Indication: PULMONARY ARTERIAL HYPERTENSION
     Route: 048
     Dates: start: 20101119
  15. LETAIRIS [Suspect]
     Indication: PULMONARY HYPERTENSION
  16. METOPROLOL SUCCINATE [Concomitant]
  17. SIMVASTATIN [Concomitant]
  18. ADVAIR DISKUS 100/50 [Concomitant]
  19. GLIPIZIDE [Concomitant]
  20. SPIRIVA WITH HANDIHALER [Concomitant]
  21. TIOTROPIUM BROMIDE [Concomitant]

REACTIONS (1)
  - ATRIAL FIBRILLATION [None]
